FAERS Safety Report 10370305 (Version 1)
Quarter: 2014Q1

REPORT INFORMATION
  Report Type: Spontaneous
  Country: US (occurrence: None)
  Receive Date: 20140306
  Receipt Date: 20140306
  Transmission Date: 20141002
  Serious: Yes (Hospitalization, Other)
  Sender: FDA-Public Use
  Company Number: 163-21880-13070083

PATIENT
  Age: 67 Year
  Sex: Male
  Weight: 109.77 kg

DRUGS (12)
  1. REVLIMID [Suspect]
     Indication: PLASMA CELL MYELOMA
     Dosage: 25 MG, 14 IN 21 D, PO
     Route: 048
     Dates: start: 20130429, end: 20130620
  2. ONDANSETRON [Concomitant]
  3. LISINOPRIL/HCTZ (PRINZIDE) (TABLETS) [Concomitant]
  4. ZOLEDRONIC ACID (ZOLEDRONIC ACID) (INJECTION) [Concomitant]
  5. VELCADE (BORTEZOMIB) (INJECTION) [Concomitant]
  6. VALACYCLOVIR (VALACICLOVIR HYDROCHLORIDE) (TABLETS) [Concomitant]
  7. DIPHENHYDRAMINE (DIPHENHYDRAMINE) (TABLETS) [Concomitant]
  8. LORATADINE (LORATADINE) (TABLETS) [Concomitant]
  9. DEXAMETHASONE (DEXAMETHASONE) (TABLETS) [Concomitant]
  10. FERROUS SULFATE (FERROUS SULFATE) (TABLETS) [Concomitant]
  11. TIMOLOL (TIMOLOL) (GEL) [Concomitant]
  12. CIALIS (TADALAFIL) (TABLETS) [Concomitant]

REACTIONS (2)
  - Deep vein thrombosis [None]
  - Pulmonary embolism [None]
